FAERS Safety Report 8261723-X (Version None)
Quarter: 2012Q2

REPORT INFORMATION
  Report Type: 
  Country: None (occurrence: None)
  Receive Date: 20120405
  Receipt Date: 20120402
  Transmission Date: 20120825
  Serious: Yes (Hospitalization)
  Sender: FDA-Public Use
  Company Number: NL-PFIZER INC-2012082513

PATIENT
  Age: 44 Year
  Sex: Female

DRUGS (2)
  1. ARTHROTEC [Suspect]
     Indication: PAIN IN EXTREMITY
  2. ARTHROTEC [Suspect]
     Indication: BACK PAIN
     Dosage: UNK
     Dates: start: 20070203

REACTIONS (4)
  - ABORTION MISSED [None]
  - HAEMORRHAGE [None]
  - HAEMATURIA [None]
  - ABDOMINAL PAIN UPPER [None]
